FAERS Safety Report 23563904 (Version 2)
Quarter: 2024Q1

REPORT INFORMATION
  Report Type: Report from Study
  Country: US (occurrence: US)
  Receive Date: 20240226
  Receipt Date: 20240322
  Transmission Date: 20240409
  Serious: No
  Sender: FDA-Public Use
  Company Number: US-ACADIA PHARMACEUTICALS INC.-ACA-2024-PIM-000493

PATIENT
  Sex: Female

DRUGS (20)
  1. NUPLAZID [Suspect]
     Active Substance: PIMAVANSERIN TARTRATE
     Indication: Parkinson^s disease psychosis
     Dosage: 34 MILLIGRAM, QD
     Route: 048
  2. GABAPENTIN [Concomitant]
     Active Substance: GABAPENTIN
     Dosage: 400 MILLIGRAM, TID
     Route: 048
  3. RIVASTIGMINE [Concomitant]
     Active Substance: RIVASTIGMINE
     Dosage: 13.3 MG/24HR, 1 APPLICATION DAILY
     Route: 062
  4. CARBIDOPA\LEVODOPA [Concomitant]
     Active Substance: CARBIDOPA\LEVODOPA
     Dosage: 25-100MG, 4 TIMES PER DAY
     Route: 048
  5. CARBIDOPA\LEVODOPA [Concomitant]
     Active Substance: CARBIDOPA\LEVODOPA
     Dosage: 50-200MG, 2 TIMES PER DAY
     Route: 048
  6. ROPINIROLE HYDROCHLORIDE [Concomitant]
     Active Substance: ROPINIROLE HYDROCHLORIDE
     Dosage: 0.25MG 2 TIMES PER DAY
     Route: 048
  7. BUPROPION HYDROCHLORIDE [Concomitant]
     Active Substance: BUPROPION HYDROCHLORIDE
     Dosage: 150MG/24HR DAILY
     Route: 048
  8. MIRTAZAPINE [Concomitant]
     Active Substance: MIRTAZAPINE
     Dosage: 45 MILLIGRAM AT BEDTIME
  9. BENZTROPINE [Concomitant]
     Active Substance: BENZTROPINE
     Dosage: 0.5 MG 2 TIMES PER DAY
     Route: 048
  10. BISACODYL [Concomitant]
     Active Substance: BISACODYL
     Route: 048
  11. POLYETHYLENE GLYCOL 3350 [Concomitant]
     Active Substance: POLYETHYLENE GLYCOL 3350
     Dosage: FOR RECONSTITUTION
     Route: 048
  12. LEQVIO [Concomitant]
     Active Substance: INCLISIRAN SODIUM
     Dosage: 284MG/1.5ML
     Route: 058
  13. VITAMIN D3 [Concomitant]
     Active Substance: CHOLECALCIFEROL
     Dosage: 125 MICROGRAM
  14. LEVOTHYROXINE SODIUM [Concomitant]
     Active Substance: LEVOTHYROXINE SODIUM
     Dosage: 25 MICROGRAM
  15. CLOPIDOGREL BISULFATE [Concomitant]
     Active Substance: CLOPIDOGREL BISULFATE
     Dosage: 75 MILLIGRAM
  16. PROPRANOLOL HYDROCHLORIDE [Concomitant]
     Active Substance: PROPRANOLOL HYDROCHLORIDE
     Dosage: 10 MILLIGRAM, BID
     Route: 048
  17. ATORVASTATIN CALCIUM [Concomitant]
     Active Substance: ATORVASTATIN CALCIUM
     Dosage: 40 MILLIGRAM
  18. NITROGLYCERIN [Concomitant]
     Active Substance: NITROGLYCERIN
     Dosage: 0.4MG
  19. VALSARTAN [Concomitant]
     Active Substance: VALSARTAN
     Dosage: 320 MILLIGRAM
  20. JANUMET [Concomitant]
     Active Substance: METFORMIN HYDROCHLORIDE\SITAGLIPTIN PHOSPHATE
     Dosage: 1000MG-50MG

REACTIONS (3)
  - Delusion [Not Recovered/Not Resolved]
  - Drug ineffective [Recovered/Resolved]
  - Hallucination [Not Recovered/Not Resolved]
